FAERS Safety Report 4721821-1 (Version None)
Quarter: 2005Q3

REPORT INFORMATION
  Report Type: 
  Country: None (occurrence: None)
  Receive Date: 20050721
  Receipt Date: 20050428
  Transmission Date: 20060218
  Serious: Yes (Hospitalization, Other)
  Sender: FDA-Public Use
  Company Number: US-BRISTOL-MYERS SQUIBB COMPANY-12950341

PATIENT
  Age: 78 Year
  Sex: Female
  Weight: 134 kg

DRUGS (6)
  1. COUMADIN [Suspect]
     Dosage: 4 MG THREE TIMES PER WEEK AND 5 MG THREE TIMES PER WEEK
  2. AVANDIA [Concomitant]
  3. GLYBURIDE [Concomitant]
  4. PREVACID [Concomitant]
  5. VASERETIC [Concomitant]
  6. ZOCOR [Concomitant]

REACTIONS (2)
  - DEEP VEIN THROMBOSIS [None]
  - INTERNATIONAL NORMALISED RATIO FLUCTUATION [None]
